FAERS Safety Report 5781830-0 (Version None)
Quarter: 2008Q2

REPORT INFORMATION
  Report Type: 
  Country: None (occurrence: None)
  Receive Date: 20080623
  Receipt Date: 20080613
  Transmission Date: 20081010
  Serious: Yes (Other)
  Sender: FDA-Public Use
  Company Number: US-AVENTIS-200813174US

PATIENT
  Sex: Female
  Weight: 87.27 kg

DRUGS (6)
  1. LOVENOX [Suspect]
     Route: 058
     Dates: start: 20080418, end: 20080419
  2. METOPROLOL [Concomitant]
  3. AMILORIDE HYDROCHLORIDE [Concomitant]
  4. SERTRALINE [Concomitant]
  5. COUMADIN [Concomitant]
  6. POTASSIUM CHLORIDE [Concomitant]

REACTIONS (4)
  - HAEMATOMA [None]
  - HAEMORRHAGE [None]
  - HYPOTENSION [None]
  - RENAL FAILURE ACUTE [None]
